FAERS Safety Report 15548334 (Version 1)
Quarter: 2018Q4

REPORT INFORMATION
  Report Type: Spontaneous
  Country: CN (occurrence: CN)
  Receive Date: 20181024
  Receipt Date: 20181024
  Transmission Date: 20190205
  Serious: Yes (Life-Threatening, Hospitalization, Other)
  Sender: FDA-Public Use
  Company Number: CN-BAXTER-2018BAX026039

PATIENT
  Sex: Male

DRUGS (3)
  1. QIFUMEI [Suspect]
     Active Substance: SEVOFLURANE
     Indication: DRUG DEPENDENCE
     Dosage: 3 TO 5 ML VIA SNIFFING WITH GAUZE
     Route: 055
  2. QIFUMEI [Suspect]
     Active Substance: SEVOFLURANE
     Dosage: INCREASE THE DOSE FROM 6 TO 8 ML
     Route: 045
  3. QIFUMEI [Suspect]
     Active Substance: SEVOFLURANE
     Dosage: GRADUALLY INCREASED THE DOSES AND FREQUENCY
     Route: 045

REACTIONS (6)
  - Occupational exposure to product [Recovered/Resolved]
  - Drug dependence [Recovered/Resolved]
  - Euphoric mood [Recovered/Resolved]
  - Pneumonia aspiration [Recovered/Resolved]
  - Drug withdrawal syndrome [Recovered/Resolved]
  - Drug abuse [Recovered/Resolved]
